FAERS Safety Report 12427308 (Version 2)
Quarter: 2016Q2

REPORT INFORMATION
  Report Type: Spontaneous
  Country: JP (occurrence: JP)
  Receive Date: 20160602
  Receipt Date: 20160606
  Transmission Date: 20160815
  Serious: Yes (Life-Threatening)
  Sender: FDA-Public Use
  Company Number: JP-ROCHE-1750717

PATIENT
  Age: 76 Year
  Sex: Female
  Weight: 48 kg

DRUGS (5)
  1. AVASTIN [Suspect]
     Active Substance: BEVACIZUMAB
     Indication: COLON CANCER
     Dosage: TREATMENT LINE: 1
     Route: 041
     Dates: start: 20160216, end: 20160329
  2. XELODA [Suspect]
     Active Substance: CAPECITABINE
     Indication: COLON CANCER
     Dosage: COMPLETED TREATMENT CYCLE NUMBER: 2?MOST RECENT DOSE ON 12/APR/2016.
     Route: 048
     Dates: start: 20160216
  3. EMEND [Concomitant]
     Active Substance: APREPITANT
     Dosage: AMOUNT OF 1 ONCE ADMINISTRATION: 80-125 (UNIT UNCERTAINTY)
     Route: 048
     Dates: start: 20160216, end: 20160329
  4. OXALIPLATIN. [Suspect]
     Active Substance: OXALIPLATIN
     Indication: COLON CANCER
     Dosage: COMPLETED TREATMENT CYCLE NUMBER: 2?MOST RECENT DOSE ON 12/APR/2016.
     Route: 041
     Dates: start: 20160216
  5. NEUROTROPIN (JAPAN) [Concomitant]
     Route: 048
     Dates: start: 20160216, end: 20160425

REACTIONS (4)
  - Dizziness [Unknown]
  - Wheezing [Unknown]
  - Anaphylactic reaction [Recovered/Resolved]
  - Diarrhoea [Unknown]

NARRATIVE: CASE EVENT DATE: 20160329
